FAERS Safety Report 20150479 (Version 1)
Quarter: 2021Q4

REPORT INFORMATION
  Report Type: Report from Study
  Country: IT (occurrence: IT)
  Receive Date: 20211206
  Receipt Date: 20211206
  Transmission Date: 20220303
  Serious: Yes (Other)
  Sender: FDA-Public Use
  Company Number: None

PATIENT
  Age: 68 Year
  Sex: Female
  Weight: 58 kg

DRUGS (5)
  1. PACLITAXEL [Suspect]
     Active Substance: PACLITAXEL
     Indication: Cervix carcinoma
     Dosage: 245MILLIGRAM, TEVA ITALIA
     Route: 042
     Dates: start: 20210830
  2. DEXAMETHASONE [Concomitant]
     Active Substance: DEXAMETHASONE
     Dosage: 8MILLIGRAM
  3. METOCLOPRAMIDE HYDROCHLORIDE [Concomitant]
     Active Substance: METOCLOPRAMIDE HYDROCHLORIDE
     Indication: Nausea
     Dosage: 30MILLIGRAM
     Route: 048
  4. EMEND [Concomitant]
     Active Substance: APREPITANT
     Indication: Nausea
     Dosage: FORM STRENGTH:125 MG ,80 MG
     Route: 048
     Dates: start: 20210830
  5. CARBOPLATIN [Concomitant]
     Active Substance: CARBOPLATIN
     Indication: Cervix carcinoma
     Dosage: 380MILLIGRAM
     Route: 042
     Dates: start: 20210830

REACTIONS (3)
  - Lymphopenia [Unknown]
  - Neurotoxicity [Unknown]
  - Anaemia [Unknown]

NARRATIVE: CASE EVENT DATE: 20211110
